FAERS Safety Report 10457204 (Version 5)
Quarter: 2014Q4

REPORT INFORMATION
  Report Type: Report from Study
  Country: CN (occurrence: CN)
  Receive Date: 20140916
  Receipt Date: 20141020
  Transmission Date: 20150528
  Serious: Yes (Death, Hospitalization)
  Sender: FDA-Public Use
  Company Number: CN-BAYER-2014-135252

PATIENT
  Age: 52 Year
  Sex: Male

DRUGS (3)
  1. NEXAVAR [Suspect]
     Active Substance: SORAFENIB
     Indication: HEPATOCELLULAR CARCINOMA
     Dosage: 400 MG, QD
     Route: 048
     Dates: start: 20140913, end: 20140922
  2. NEXAVAR [Suspect]
     Active Substance: SORAFENIB
     Indication: HEPATOCELLULAR CARCINOMA
     Dosage: UNK
     Dates: start: 20140923
  3. NEXAVAR [Suspect]
     Active Substance: SORAFENIB
     Indication: HEPATOCELLULAR CARCINOMA
     Dosage: 400 MG, BID
     Route: 048
     Dates: start: 20140829, end: 20140912

REACTIONS (10)
  - Asthenia [None]
  - Death [Fatal]
  - Diarrhoea [None]
  - Aspartate aminotransferase increased [None]
  - Faeces discoloured [None]
  - Yellow skin [None]
  - Ascites [None]
  - Diarrhoea [None]
  - Aspartate aminotransferase increased [None]
  - Hepatocellular carcinoma [None]

NARRATIVE: CASE EVENT DATE: 2014
